FAERS Safety Report 14947689 (Version 5)
Quarter: 2021Q3

REPORT INFORMATION
  Report Type: Spontaneous
  Country: US (occurrence: US)
  Receive Date: 20180529
  Receipt Date: 20210817
  Transmission Date: 20211014
  Serious: Yes (Hospitalization)
  Sender: FDA-Public Use
  Company Number: US-VIFOR (INTERNATIONAL) INC.-VIT-2018-04909

PATIENT
  Age: 79 Year
  Sex: Female

DRUGS (12)
  1. VELTASSA [Suspect]
     Active Substance: PATIROMER
     Indication: HYPERKALAEMIA
     Route: 048
     Dates: start: 20180323
  2. LIVALO [Concomitant]
     Active Substance: PITAVASTATIN CALCIUM
  3. COLCHICINE. [Concomitant]
     Active Substance: COLCHICINE
  4. LYRICA [Concomitant]
     Active Substance: PREGABALIN
  5. PANTOPRAZOLE SODIUM. [Concomitant]
     Active Substance: PANTOPRAZOLE SODIUM
  6. VELTASSA [Suspect]
     Active Substance: PATIROMER
     Route: 048
  7. VELTASSA [Suspect]
     Active Substance: PATIROMER
     Route: 048
     Dates: start: 20180422
  8. ASPIRIN. [Concomitant]
     Active Substance: ASPIRIN
  9. CALCITRIOL. [Concomitant]
     Active Substance: CALCITRIOL
  10. NIFEDIPINE. [Concomitant]
     Active Substance: NIFEDIPINE
  11. PRAMIPEXOLE DIHYDROCHLORIDE. [Concomitant]
     Active Substance: PRAMIPEXOLE DIHYDROCHLORIDE
  12. METOPROLOL SUCCINATE. [Concomitant]
     Active Substance: METOPROLOL SUCCINATE

REACTIONS (8)
  - Hospitalisation [Unknown]
  - Urinary tract infection [Unknown]
  - Eyelid disorder [Not Recovered/Not Resolved]
  - Eye pruritus [Not Recovered/Not Resolved]
  - Hip surgery [Unknown]
  - Blood potassium increased [Unknown]
  - Off label use [Unknown]
  - Renal disorder [Unknown]

NARRATIVE: CASE EVENT DATE: 2018
